FAERS Safety Report 17608557 (Version 2)
Quarter: 2020Q2

REPORT INFORMATION
  Report Type: Spontaneous
  Country: US (occurrence: US)
  Receive Date: 20200401
  Receipt Date: 20200423
  Transmission Date: 20200713
  Serious: Yes (Hospitalization, Other)
  Sender: FDA-Public Use
  Company Number: US-009507513-2003USA011104

PATIENT
  Age: 90 Year
  Sex: Female

DRUGS (2)
  1. ZETIA [Concomitant]
     Active Substance: EZETIMIBE
     Dosage: 10 MG, AT NIGHT PRIOR TO BED FOR OVER 3 YEARS
     Route: 048
  2. COZAAR [Suspect]
     Active Substance: LOSARTAN POTASSIUM
     Dosage: UNK
     Route: 048

REACTIONS (1)
  - Angioedema [Unknown]
